FAERS Safety Report 21735722 (Version 1)
Quarter: 2022Q4

REPORT INFORMATION
  Report Type: Spontaneous
  Country: IT (occurrence: IT)
  Receive Date: 20221215
  Receipt Date: 20221215
  Transmission Date: 20230112
  Serious: Yes (Hospitalization)
  Sender: FDA-Public Use
  Company Number: IT-LUNDBECK-DKLU3055846

PATIENT
  Age: 74 Year
  Sex: Male

DRUGS (24)
  1. VORTIOXETINE [Suspect]
     Active Substance: VORTIOXETINE
     Indication: Depressed mood
     Dosage: UNK
     Route: 065
  2. VORTIOXETINE [Suspect]
     Active Substance: VORTIOXETINE
     Indication: Anxiety
  3. VORTIOXETINE [Suspect]
     Active Substance: VORTIOXETINE
     Indication: Obsessive rumination
  4. VORTIOXETINE [Suspect]
     Active Substance: VORTIOXETINE
     Indication: Apathy
  5. VORTIOXETINE [Suspect]
     Active Substance: VORTIOXETINE
     Indication: Feelings of worthlessness
  6. VORTIOXETINE [Suspect]
     Active Substance: VORTIOXETINE
     Indication: Somatic dysfunction
  7. CITALOPRAM [Suspect]
     Active Substance: CITALOPRAM HYDROBROMIDE
     Indication: Depressed mood
     Dosage: 30 MILLIGRAM
     Route: 065
  8. CITALOPRAM [Suspect]
     Active Substance: CITALOPRAM HYDROBROMIDE
     Indication: Anxiety
     Dosage: 20 MILLIGRAM
     Route: 065
  9. CITALOPRAM [Suspect]
     Active Substance: CITALOPRAM HYDROBROMIDE
     Indication: Obsessive rumination
  10. CITALOPRAM [Suspect]
     Active Substance: CITALOPRAM HYDROBROMIDE
     Indication: Apathy
  11. CITALOPRAM [Suspect]
     Active Substance: CITALOPRAM HYDROBROMIDE
     Indication: Feelings of worthlessness
  12. CITALOPRAM [Suspect]
     Active Substance: CITALOPRAM HYDROBROMIDE
     Indication: Somatic dysfunction
  13. QUETIAPINE [Suspect]
     Active Substance: QUETIAPINE
     Indication: Depressed mood
     Dosage: 100 MILLIGRAM
     Route: 065
  14. QUETIAPINE [Suspect]
     Active Substance: QUETIAPINE
     Indication: Anxiety
     Dosage: 75 MILLIGRAM
     Route: 065
  15. QUETIAPINE [Suspect]
     Active Substance: QUETIAPINE
     Indication: Obsessive rumination
  16. QUETIAPINE [Suspect]
     Active Substance: QUETIAPINE
     Indication: Apathy
  17. QUETIAPINE [Suspect]
     Active Substance: QUETIAPINE
     Indication: Feelings of worthlessness
  18. QUETIAPINE [Suspect]
     Active Substance: QUETIAPINE
     Indication: Somatic dysfunction
  19. LORAZEPAM [Suspect]
     Active Substance: LORAZEPAM
     Indication: Depressed mood
     Dosage: 2.5 MILLIGRAM
     Route: 065
  20. LORAZEPAM [Suspect]
     Active Substance: LORAZEPAM
     Indication: Anxiety
  21. LORAZEPAM [Suspect]
     Active Substance: LORAZEPAM
     Indication: Obsessive rumination
  22. LORAZEPAM [Suspect]
     Active Substance: LORAZEPAM
     Indication: Apathy
  23. LORAZEPAM [Suspect]
     Active Substance: LORAZEPAM
     Indication: Feelings of worthlessness
  24. LORAZEPAM [Suspect]
     Active Substance: LORAZEPAM
     Indication: Somatic dysfunction

REACTIONS (3)
  - Condition aggravated [Recovered/Resolved]
  - Negativism [Recovered/Resolved]
  - Drug ineffective [Unknown]
